FAERS Safety Report 9026461 (Version 3)
Quarter: 2013Q1

REPORT INFORMATION
  Report Type: Spontaneous
  Country: IT (occurrence: IT)
  Receive Date: 20130123
  Receipt Date: 20130301
  Transmission Date: 20140127
  Serious: Yes (Hospitalization)
  Sender: FDA-Public Use
  Company Number: IT-JNJFOC-20130104686

PATIENT
  Age: 40 Year
  Sex: Male

DRUGS (3)
  1. INVEGA [Suspect]
     Indication: DRUG ABUSE
     Route: 048
     Dates: start: 20130108, end: 20130108
  2. INVEGA [Suspect]
     Indication: SEDATION
     Route: 048
     Dates: start: 20130108, end: 20130108
  3. MINIAS [Concomitant]
     Route: 065

REACTIONS (4)
  - Self-medication [Unknown]
  - Drug abuse [Recovered/Resolved]
  - Dyskinesia [Recovered/Resolved]
  - Dystonia [Recovered/Resolved]
